FAERS Safety Report 15118490 (Version 7)
Quarter: 2025Q1

REPORT INFORMATION
  Report Type: Spontaneous
  Country: JP (occurrence: JP)
  Receive Date: 20180708
  Receipt Date: 20250212
  Transmission Date: 20250409
  Serious: Yes (Death, Hospitalization, Disabling, Other)
  Sender: BRISTOL-MYERS SQUIBB COMPANY
  Company Number: JP-BRISTOL-MYERS SQUIBB COMPANY-BMS-2018-048771

PATIENT
  Age: 70 Year
  Sex: Female
  Weight: 50 kg

DRUGS (14)
  1. OPDIVO [Suspect]
     Active Substance: NIVOLUMAB
     Indication: Non-small cell lung cancer recurrent
     Route: 041
     Dates: start: 20180517, end: 20180626
  2. CEFEPIME HYDROCHLORIDE [Suspect]
     Active Substance: CEFEPIME HYDROCHLORIDE
     Indication: Product used for unknown indication
     Dates: start: 2018
  3. DOCETAXEL [Suspect]
     Active Substance: DOCETAXEL
     Indication: Non-small cell lung cancer recurrent
     Dates: start: 20180320, end: 20180419
  4. ELIQUIS [Concomitant]
     Active Substance: APIXABAN
     Indication: Product used for unknown indication
     Dosage: AFTER BREAKFAST AND DINNER
     Route: 048
  5. LEVOTHYROXINE SODIUM [Concomitant]
     Active Substance: LEVOTHYROXINE SODIUM
     Indication: Product used for unknown indication
     Dosage: 25 (1 TABLET/DOSE, QD, AFTER BREAKFAST)
     Route: 048
  6. LEVOTHYROXINE SODIUM [Concomitant]
     Active Substance: LEVOTHYROXINE SODIUM
     Dosage: 50 (1 TABLET/DOSE, QD, AFTER BREAKFAST)
     Route: 048
  7. MAGNESIUM OXIDE [Concomitant]
     Active Substance: MAGNESIUM OXIDE
     Indication: Product used for unknown indication
     Route: 048
  8. MAGNESIUM OXIDE [Concomitant]
     Active Substance: MAGNESIUM OXIDE
     Dosage: 330 MG, 1 TABLET/DOSE, TID, AFTER BREAKFAST, LUNCH, AND DINNER
     Route: 048
  9. CALCIUM CARBONATE\CHOLECALCIFEROL\MAGNESIUM CARBONATE [Concomitant]
     Active Substance: CALCIUM CARBONATE\CHOLECALCIFEROL\MAGNESIUM CARBONATE
     Indication: Product used for unknown indication
     Dosage: AFTER BREAKFAST
     Route: 048
  10. CALCIUM CARBONATE\CHOLECALCIFEROL\MAGNESIUM CARBONATE [Concomitant]
     Active Substance: CALCIUM CARBONATE\CHOLECALCIFEROL\MAGNESIUM CARBONATE
     Dosage: AFTER BREAKFAST
     Route: 048
  11. LORAZEPAM [Concomitant]
     Active Substance: LORAZEPAM
     Indication: Product used for unknown indication
     Dosage: AFTER DINNER
     Route: 048
  12. FENTANYL [Concomitant]
     Active Substance: FENTANYL
     Indication: Pelvic pain
     Dosage: 2 MG, UNK
     Route: 003
  13. FENTANYL [Concomitant]
     Active Substance: FENTANYL
  14. CELECOXIB [Concomitant]
     Active Substance: CELECOXIB
     Indication: Product used for unknown indication
     Dosage: AFTER BREAKFAST AND DINNER
     Route: 048

REACTIONS (7)
  - Lymphangiosis carcinomatosa [Recovered/Resolved with Sequelae]
  - Interstitial lung disease [Recovered/Resolved with Sequelae]
  - Acute myocardial infarction [Unknown]
  - Thrombophlebitis migrans [Unknown]
  - Septic shock [Fatal]
  - Endocarditis noninfective [Fatal]
  - Non-small cell lung cancer [Fatal]

NARRATIVE: CASE EVENT DATE: 20180518
